FAERS Safety Report 8455884-7 (Version None)
Quarter: 2012Q2

REPORT INFORMATION
  Report Type: 
  Country: None (occurrence: None)
  Receive Date: 20120614
  Receipt Date: 20120608
  Transmission Date: 20120825
  Serious: Yes (Life-Threatening)
  Sender: FDA-Public Use
  Company Number: 2012SP023175

PATIENT
  Sex: Male

DRUGS (2)
  1. TEMODAR [Suspect]
     Indication: GLIOBLASTOMA
     Dosage: 75 MCG/M2;PO ; 150 MG/M2
     Route: 048
     Dates: start: 20091201
  2. TEMODAR [Suspect]
     Indication: GLIOBLASTOMA
     Dosage: 75 MCG/M2;PO ; 150 MG/M2
     Route: 048
     Dates: end: 20100801

REACTIONS (4)
  - MYOCARDIAL INFARCTION [None]
  - APPARENT LIFE THREATENING EVENT [None]
  - DISEASE RECURRENCE [None]
  - GLIOBLASTOMA [None]
